FAERS Safety Report 5469320-6 (Version None)
Quarter: 2007Q3

REPORT INFORMATION
  Report Type: 
  Country: None (occurrence: None)
  Receive Date: 20070927
  Receipt Date: 20070921
  Transmission Date: 20080115
  Serious: Yes (Life-Threatening)
  Sender: FDA-Public Use
  Company Number: BE-BRISTOL-MYERS SQUIBB COMPANY-13920889

PATIENT
  Age: 68 Year
  Sex: Female

DRUGS (1)
  1. MITOMYCIN-C POWDER [Suspect]
     Indication: POLYP
     Dates: start: 20070604, end: 20070615

REACTIONS (1)
  - BRONCHOSPASM [None]
